FAERS Safety Report 5905089-6 (Version None)
Quarter: 2008Q3

REPORT INFORMATION
  Report Type: 
  Country: None (occurrence: None)
  Receive Date: 20080909
  Receipt Date: 20071126
  Transmission Date: 20090109
  Serious: Yes (Death)
  Sender: FDA-Public Use
  Company Number: 163-20785-07110206

PATIENT
  Age: 69 Year
  Sex: Female

DRUGS (3)
  1. THALOMID [Suspect]
     Indication: MULTIPLE MYELOMA
     Dosage: 100 MG, 1 IN 1 D, ORAL ; 100 MG, 1 IN 1 D ; 150-200 MG, DAILY, ORAL
     Route: 048
     Dates: start: 20030801, end: 20060901
  2. THALOMID [Suspect]
     Indication: MULTIPLE MYELOMA
     Dosage: 100 MG, 1 IN 1 D, ORAL ; 100 MG, 1 IN 1 D ; 150-200 MG, DAILY, ORAL
     Route: 048
     Dates: start: 20061001, end: 20070301
  3. THALOMID [Suspect]
     Indication: MULTIPLE MYELOMA
     Dosage: 100 MG, 1 IN 1 D, ORAL ; 100 MG, 1 IN 1 D ; 150-200 MG, DAILY, ORAL
     Route: 048
     Dates: start: 20070901, end: 20071001

REACTIONS (1)
  - MULTIPLE MYELOMA [None]
